FAERS Safety Report 12792692 (Version 1)
Quarter: 2016Q3

REPORT INFORMATION
  Report Type: Spontaneous
  Country: US (occurrence: US)
  Receive Date: 20160929
  Receipt Date: 20160929
  Transmission Date: 20161109
  Serious: No
  Sender: FDA-Public Use
  Company Number: US-JAZZ-2016-US-011577

PATIENT
  Sex: Female

DRUGS (9)
  1. ENDOCET [Concomitant]
     Active Substance: ACETAMINOPHEN\OXYCODONE HYDROCHLORIDE
     Dosage: UNK
     Dates: end: 20160610
  2. SUMATRIPTAN. [Concomitant]
     Active Substance: SUMATRIPTAN
  3. CELEBREX [Concomitant]
     Active Substance: CELECOXIB
  4. DIAZEPAM. [Concomitant]
     Active Substance: DIAZEPAM
  5. SILENOR [Concomitant]
     Active Substance: DOXEPIN HYDROCHLORIDE
  6. XYREM [Suspect]
     Active Substance: SODIUM OXYBATE
     Indication: FIBROMYALGIA
  7. SONATA [Concomitant]
     Active Substance: ZALEPLON
  8. VALACYCLOVIR HCL [Concomitant]
     Active Substance: VALACYCLOVIR HYDROCHLORIDE
  9. CLIMARA PRO [Concomitant]
     Active Substance: ESTRADIOL\LEVONORGESTREL
     Dosage: 0.045-0.015 MG/DAY

REACTIONS (1)
  - Off label use [Unknown]
